FAERS Safety Report 5165304-6 (Version None)
Quarter: 2006Q4

REPORT INFORMATION
  Report Type: 
  Country: None (occurrence: None)
  Receive Date: 20061124
  Receipt Date: 20061113
  Transmission Date: 20070319
  Serious: Yes (Other)
  Sender: FDA-Public Use
  Company Number: 2006143031

PATIENT

DRUGS (5)
  1. LIPITOR [Suspect]
     Dosage: 20 MG ORAL
     Route: 048
  2. NU-SEALS ASPIRIN (ACETYLSALICYLIC ACID) [Concomitant]
  3. DIGOXIN [Concomitant]
  4. ALLOPURINOL [Concomitant]
  5. COZAAR [Concomitant]

REACTIONS (2)
  - CONDITION AGGRAVATED [None]
  - MYALGIA [None]
